FAERS Safety Report 7094269-5 (Version None)
Quarter: 2010Q4

REPORT INFORMATION
  Report Type: 
  Country: None (occurrence: None)
  Receive Date: 20101110
  Receipt Date: 20101029
  Transmission Date: 20110411
  Serious: Yes (Other)
  Sender: FDA-Public Use
  Company Number: US-SANOFI-AVENTIS-2010SA066849

PATIENT
  Age: 70 Year
  Sex: Female

DRUGS (4)
  1. PLAVIX [Suspect]
     Indication: STENT PLACEMENT
     Route: 048
     Dates: start: 20080101
  2. LISINOPRIL [Concomitant]
  3. HYDROCHLOROTHIAZIDE [Concomitant]
  4. ACEBUTOLOL [Concomitant]

REACTIONS (7)
  - ABNORMAL FAECES [None]
  - ANXIETY [None]
  - DEPRESSION [None]
  - HYPERTENSION [None]
  - RHINITIS [None]
  - SLEEP DISORDER [None]
  - TENSION [None]
